FAERS Safety Report 4874244-9 (Version None)
Quarter: 2006Q1

REPORT INFORMATION
  Report Type: 
  Country: None (occurrence: None)
  Receive Date: 20060106
  Receipt Date: 20051005
  Transmission Date: 20060701
  Serious: Yes (Death)
  Sender: FDA-Public Use
  Company Number: US-MERCK-0510USA04536

PATIENT
  Age: 48 Year
  Sex: Male
  Weight: 136 kg

DRUGS (3)
  1. VIOXX [Suspect]
     Indication: ARTHRITIS
     Route: 048
     Dates: start: 20010801, end: 20011005
  2. GLYBURIDE [Concomitant]
     Route: 065
  3. [THERAPY UNSPECIFIED] [Concomitant]
     Route: 065

REACTIONS (1)
  - MYOCARDIAL INFARCTION [None]
